FAERS Safety Report 12651203 (Version 1)
Quarter: 2016Q3

REPORT INFORMATION
  Report Type: Spontaneous
  Country: RU (occurrence: RU)
  Receive Date: 20160815
  Receipt Date: 20160815
  Transmission Date: 20161109
  Serious: Yes (Life-Threatening, Other)
  Sender: FDA-Public Use
  Company Number: RU-ASTRAZENECA-2016SE85532

PATIENT
  Age: 60 Year
  Sex: Female

DRUGS (6)
  1. BRILINTA [Suspect]
     Active Substance: TICAGRELOR
     Indication: MYOCARDIAL INFARCTION
     Route: 048
     Dates: start: 20160627
  2. MALTOFER [Concomitant]
     Active Substance: IRON POLYMALTOSE
  3. ASPIRIN. [Concomitant]
     Active Substance: ASPIRIN
     Dosage: DAILY
     Route: 048
     Dates: end: 20160703
  4. CONCOR [Concomitant]
     Active Substance: BISOPROLOL FUMARATE
  5. CARDIOMAGNYL [Concomitant]
     Active Substance: ASPIRIN\MAGNESIUM HYDROXIDE
     Dates: start: 20160711, end: 20160719
  6. OMEZ [Concomitant]
     Active Substance: OMEPRAZOLE

REACTIONS (5)
  - Melaena [Recovered/Resolved]
  - Gastritis erosive [Unknown]
  - Contusion [Not Recovered/Not Resolved]
  - Haematemesis [Recovered/Resolved]
  - Pruritus [Not Recovered/Not Resolved]

NARRATIVE: CASE EVENT DATE: 201607
